FAERS Safety Report 10143264 (Version 1)
Quarter: 2014Q2

REPORT INFORMATION
  Report Type: Spontaneous
  Country: BE (occurrence: None)
  Receive Date: 20140428
  Receipt Date: 20140428
  Transmission Date: 20141212
  Serious: Yes (Other)
  Sender: FDA-Public Use
  Company Number: SYM-2014-19948

PATIENT
  Age: 25 Year
  Sex: Male

DRUGS (3)
  1. FLAGYL [Suspect]
     Indication: HELICOBACTER INFECTION
     Dosage: 1000 MG, 2 IN 1 D,
  2. BICLAR (CLARITHROMYCIN) [Concomitant]
  3. OMEPRAZOLE (OMEPRAZOLE) [Concomitant]

REACTIONS (6)
  - Decreased appetite [None]
  - Paraesthesia oral [None]
  - Anxiety [None]
  - Dysgeusia [None]
  - Dysgeusia [None]
  - Hypoaesthesia [None]
